FAERS Safety Report 13789773 (Version 2)
Quarter: 2018Q4

REPORT INFORMATION
  Report Type: Spontaneous
  Country: GB (occurrence: GB)
  Receive Date: 20170725
  Receipt Date: 20181010
  Transmission Date: 20190204
  Serious: Yes (Death, Other)
  Sender: FDA-Public Use
  Company Number: GB-ROCHE-1967147

PATIENT
  Age: 62 Year
  Sex: Female
  Weight: 37 kg

DRUGS (30)
  1. DULOXETINE. [Concomitant]
     Active Substance: DULOXETINE
     Route: 065
  2. CYCLIZINE [Concomitant]
     Active Substance: CYCLIZINE
     Route: 065
  3. LANSOPRAZOLE. [Concomitant]
     Active Substance: LANSOPRAZOLE
     Route: 065
  4. TAZOBACTAM [Concomitant]
     Active Substance: TAZOBACTAM
  5. CACIT VITAMIN D3 [Concomitant]
     Active Substance: CALCIUM CARBONATE\CHOLECALCIFEROL
     Route: 065
  6. PROCHLORPERAZINE. [Concomitant]
     Active Substance: PROCHLORPERAZINE
     Route: 065
  7. FERRIC CARBOXYMALTOSE [Concomitant]
     Active Substance: FERRIC CARBOXYMALTOSE
     Route: 065
  8. MORPHINE [Concomitant]
     Active Substance: MORPHINE
     Route: 065
  9. NEFOPAM [Concomitant]
     Active Substance: NEFOPAM
     Route: 065
  10. LERCANIDIPINE [Concomitant]
     Active Substance: LERCANIDIPINE
     Route: 065
  11. PIPERACILLIN. [Concomitant]
     Active Substance: PIPERACILLIN SODIUM
     Route: 065
  12. CODEINE [Concomitant]
     Active Substance: CODEINE
     Route: 065
  13. RANITIDINE. [Concomitant]
     Active Substance: RANITIDINE
     Route: 065
  14. AMOXICILLIN. [Concomitant]
     Active Substance: AMOXICILLIN
     Route: 065
  15. OXYCODONE [Concomitant]
     Active Substance: OXYCODONE
     Route: 065
  16. SENNA [Concomitant]
     Active Substance: SENNA LEAF\SENNOSIDES\SENNOSIDES A AND B
     Route: 065
  17. FOLIC ACID. [Concomitant]
     Active Substance: FOLIC ACID
     Route: 065
  18. LOPERAMIDE [Concomitant]
     Active Substance: LOPERAMIDE
     Route: 065
  19. MIDAZOLAM [Concomitant]
     Active Substance: MIDAZOLAM HYDROCHLORIDE
     Route: 065
  20. CIPROFLOXACIN. [Concomitant]
     Active Substance: CIPROFLOXACIN
     Route: 065
  21. PARACETAMOL [Concomitant]
     Active Substance: ACETAMINOPHEN
     Route: 065
  22. VANCOMYCIN [Concomitant]
     Active Substance: VANCOMYCIN
     Route: 065
  23. PREDNISOLONE. [Concomitant]
     Active Substance: PREDNISOLONE
     Route: 065
  24. METHOTREXATE. [Concomitant]
     Active Substance: METHOTREXATE
     Route: 065
  25. ONDANSETRON [Concomitant]
     Active Substance: ONDANSETRON
     Route: 065
  26. METRONIDAZOLE. [Concomitant]
     Active Substance: METRONIDAZOLE
     Route: 065
  27. HYOSCINE BUTYLBROMIDE [Concomitant]
     Active Substance: BUTYLSCOPOLAMINE
     Route: 065
  28. RITUXIMAB. [Suspect]
     Active Substance: RITUXIMAB
     Indication: RHEUMATOID ARTHRITIS
     Dosage: MOST RECENT DOSE : JAN/2017
     Route: 042
     Dates: start: 201309
  29. CO-AMOXICLAV [Concomitant]
     Active Substance: AMOXICILLIN\CLAVULANATE POTASSIUM
     Route: 065
  30. FENTANYL. [Concomitant]
     Active Substance: FENTANYL
     Dosage: 25MCG AND 75MCG TRANSDERMAL PATCHES
     Route: 062

REACTIONS (8)
  - Diarrhoea [Not Recovered/Not Resolved]
  - Intestinal perforation [Not Recovered/Not Resolved]
  - Hypothermia [Not Recovered/Not Resolved]
  - Abdominal pain [Not Recovered/Not Resolved]
  - Hypotension [Not Recovered/Not Resolved]
  - Peritonitis [Not Recovered/Not Resolved]
  - Blood lactic acid increased [Not Recovered/Not Resolved]
  - Colitis [Fatal]

NARRATIVE: CASE EVENT DATE: 20170108
